FAERS Safety Report 8204392-7 (Version None)
Quarter: 2012Q1

REPORT INFORMATION
  Report Type: 
  Country: None (occurrence: None)
  Receive Date: 20120313
  Receipt Date: 20120313
  Transmission Date: 20120608
  Serious: No
  Sender: FDA-Public Use
  Company Number: None

PATIENT
  Sex: Male
  Weight: 95.254 kg

DRUGS (2)
  1. PRAVASTATIN SODIUM [Suspect]
     Indication: BLOOD TRIGLYCERIDES INCREASED
     Dosage: 2 40 MG. TABLETS
     Route: 048
  2. PRAVASTATIN SODIUM [Suspect]
     Indication: BLOOD CHOLESTEROL INCREASED
     Dosage: 2 40 MG. TABLETS
     Route: 048

REACTIONS (4)
  - NAUSEA [None]
  - DIZZINESS [None]
  - REACTION TO DRUG EXCIPIENTS [None]
  - PRODUCT SUBSTITUTION ISSUE [None]
